FAERS Safety Report 10223022 (Version 2)
Quarter: 2014Q2

REPORT INFORMATION
  Report Type: Spontaneous
  Country: DK (occurrence: DK)
  Receive Date: 20140607
  Receipt Date: 20140607
  Transmission Date: 20141212
  Serious: Yes (Death)
  Sender: FDA-Public Use
  Company Number: PHHY2014DK060338

PATIENT
  Age: 55 Year
  Sex: Female
  Weight: 55 kg

DRUGS (3)
  1. LEPONEX [Suspect]
     Indication: SCHIZOPHRENIA, UNDIFFERENTIATED TYPE
     Dosage: 200 MG, DAILY
     Route: 048
     Dates: start: 20040611, end: 20140308
  2. ABILIFY [Concomitant]
     Indication: SCHIZOPHRENIA, UNDIFFERENTIATED TYPE
     Dosage: UNK
     Dates: start: 20140227
  3. OXAZEPAM [Concomitant]
     Indication: SEDATION
     Dosage: UNK
     Dates: start: 20140110

REACTIONS (3)
  - Cardiac arrest [Fatal]
  - Abdominal pain [Not Recovered/Not Resolved]
  - Constipation [Not Recovered/Not Resolved]
